FAERS Safety Report 8736074 (Version 3)
Quarter: 2012Q4

REPORT INFORMATION
  Report Type: 
  Country: US (occurrence: US)
  Receive Date: 20120822
  Receipt Date: 20121029
  Transmission Date: 20130627
  Serious: Yes (Hospitalization)
  Sender: FDA-Public Use
  Company Number: US-B.I. PHARMACEUTICALS,INC./RIDGEFIELD-2012-BP-19103BP

PATIENT
  Age: 66 Year
  Sex: Male

DRUGS (12)
  1. PRADAXA [Suspect]
     Indication: ATRIAL FIBRILLATION
     Dosage: 300 mg
     Route: 048
     Dates: start: 20110701, end: 20120523
  2. AMIODARONE HCL [Concomitant]
     Dosage: 200 mg
     Route: 048
  3. K-DUR [Concomitant]
     Dosage: 20 mEq
     Route: 048
  4. XANAX [Concomitant]
  5. LOVASTATIN [Concomitant]
     Indication: DYSLIPIDAEMIA
     Dosage: 10 mg
     Route: 048
  6. SPIRIVA [Concomitant]
     Dosage: 18 mcg
  7. SPIRIVA [Concomitant]
  8. LASIX [Concomitant]
     Dosage: 80 mg
     Route: 048
  9. ASPIRIN [Concomitant]
     Dosage: 81 mg
     Route: 048
  10. NIACIN [Concomitant]
     Indication: DYSLIPIDAEMIA
     Dosage: 500 mg
     Route: 048
  11. ADVAIR DISKUS [Concomitant]
     Route: 055
  12. VENTOLIN HFA [Concomitant]
     Route: 055

REACTIONS (4)
  - Haemothorax [Recovered/Resolved]
  - Pericardial effusion [Recovered/Resolved]
  - Renal impairment [Unknown]
  - Blood creatinine abnormal [Unknown]
